FAERS Safety Report 4501325-1 (Version None)
Quarter: 2004Q4

REPORT INFORMATION
  Report Type: 
  Country: None (occurrence: None)
  Receive Date: 20041109
  Receipt Date: 20041029
  Transmission Date: 20050328
  Serious: Yes (Life-Threatening, Hospitalization)
  Sender: FDA-Public Use
  Company Number: GB-JNJFOC-20041100198

PATIENT
  Age: 80 Year
  Sex: Female
  Weight: 80 kg

DRUGS (8)
  1. IBUPROFEN [Suspect]
     Indication: PAIN
     Dosage: 400 MG, 3 IN 1 DAY, ORAL
     Route: 048
     Dates: start: 20040809, end: 20040811
  2. ENOXAPARIN SODIUM [Suspect]
     Indication: THROMBOSIS PROPHYLAXIS
     Dosage: 400 MG, SUBCUTANEOUS
     Route: 058
     Dates: start: 20040809, end: 20040814
  3. RAMIPRIL [Suspect]
     Indication: HYPERTENSION
     Dosage: 10 MG, 1 IN 1 DAY, ORAL
     Route: 048
     Dates: end: 20040811
  4. FUROSEMIDE [Suspect]
     Indication: CARDIAC FAILURE
     Dosage: 40 MG, 1 IN 1 DAY, ORAL
     Route: 048
  5. FUROSEMIDE [Suspect]
     Indication: OEDEMA
     Dosage: 40 MG, 1 IN 1 DAY, ORAL
     Route: 048
  6. SERETIDE (SERETIDE) [Concomitant]
  7. PARACETAMOL (PARACETAMOL) [Concomitant]
  8. NYSTATIN [Concomitant]

REACTIONS (11)
  - CELLULITIS [None]
  - DEHYDRATION [None]
  - DUODENAL ULCER HAEMORRHAGE [None]
  - DUODENITIS [None]
  - GASTRIC ULCER [None]
  - GASTRITIS [None]
  - HIATUS HERNIA [None]
  - NEPHROPATHY TOXIC [None]
  - OESOPHAGITIS [None]
  - RENAL FAILURE ACUTE [None]
  - SEPSIS [None]
